FAERS Safety Report 8190059-0 (Version None)
Quarter: 2012Q1

REPORT INFORMATION
  Report Type: 
  Country: None (occurrence: None)
  Receive Date: 20120307
  Receipt Date: 20120223
  Transmission Date: 20120608
  Serious: Yes (Other)
  Sender: FDA-Public Use
  Company Number: CH-CELGENEUS-151-CTHAL-12022469

PATIENT
  Age: 58 Year
  Sex: Female

DRUGS (2)
  1. THALIDOMIDE [Suspect]
     Route: 048
     Dates: start: 20090201
  2. THALIDOMIDE [Suspect]
     Route: 048
     Dates: start: 20100301

REACTIONS (3)
  - MUSCLE CONTRACTIONS INVOLUNTARY [None]
  - PARAESTHESIA [None]
  - POLYNEUROPATHY [None]
